FAERS Safety Report 18187221 (Version 3)
Quarter: 2021Q1

REPORT INFORMATION
  Report Type: Report from Study
  Country: CO (occurrence: CO)
  Receive Date: 20200824
  Receipt Date: 20210208
  Transmission Date: 20210419
  Serious: Yes (Life-Threatening, Hospitalization, Other)
  Sender: FDA-Public Use
  Company Number: NVSC2020CO224737

PATIENT
  Sex: Female

DRUGS (1)
  1. REVOLADE [Suspect]
     Active Substance: ELTROMBOPAG OLAMINE
     Indication: IMMUNE THROMBOCYTOPENIA
     Dosage: 50 MG, QD
     Route: 048

REACTIONS (16)
  - Dysuria [Unknown]
  - Blood pressure increased [Unknown]
  - Nasopharyngitis [Unknown]
  - Decreased immune responsiveness [Unknown]
  - Diarrhoea [Unknown]
  - Back pain [Not Recovered/Not Resolved]
  - Plasma cell myeloma [Unknown]
  - Pleural effusion [Unknown]
  - Immune thrombocytopenia [Unknown]
  - Platelet count decreased [Unknown]
  - Renal failure [Unknown]
  - Dysarthria [Not Recovered/Not Resolved]
  - Abdominal pain [Not Recovered/Not Resolved]
  - Rib fracture [Unknown]
  - Haemoglobin decreased [Unknown]
  - Pain [Not Recovered/Not Resolved]

NARRATIVE: CASE EVENT DATE: 2016
